FAERS Safety Report 5698321-8 (Version None)
Quarter: 2008Q2

REPORT INFORMATION
  Report Type: 
  Country: None (occurrence: None)
  Receive Date: 20080408
  Receipt Date: 20080311
  Transmission Date: 20081010
  Serious: No
  Sender: FDA-Public Use
  Company Number: US-BOEHRINGER INGELHEIM GMBH, GERMANY-2008-BP-03048BP

PATIENT
  Sex: Male

DRUGS (3)
  1. FLOMAX [Suspect]
     Indication: BENIGN PROSTATIC HYPERPLASIA
     Route: 048
     Dates: start: 20010327
  2. FLOMAX [Suspect]
     Indication: PROSTATOMEGALY
     Route: 048
     Dates: start: 20071101, end: 20071201
  3. NASAL SPRAY [Concomitant]
     Indication: SEASONAL ALLERGY
     Route: 045

REACTIONS (1)
  - DRUG INEFFECTIVE [None]
